FAERS Safety Report 17500853 (Version 4)
Quarter: 2020Q4

REPORT INFORMATION
  Report Type: Spontaneous
  Country: CA (occurrence: CA)
  Receive Date: 20200305
  Receipt Date: 20201211
  Transmission Date: 20210113
  Serious: Yes (Other)
  Sender: FDA-Public Use
  Company Number: CA-CELLTRION INC.-2020CA019771

PATIENT

DRUGS (6)
  1. INFLECTRA [Suspect]
     Active Substance: INFLIXIMAB-DYYB
     Indication: COLITIS ULCERATIVE
     Dosage: 400 MG, EVERY 5 WEEKS
     Route: 042
     Dates: start: 20200116
  2. INFLECTRA [Suspect]
     Active Substance: INFLIXIMAB-DYYB
     Dosage: 400 MG, EVERY 5 WEEKS
     Route: 042
     Dates: start: 20200918
  3. INFLECTRA [Suspect]
     Active Substance: INFLIXIMAB-DYYB
     Dosage: 400 MG, EVERY 5 WEEKS
     Route: 042
     Dates: start: 20201127
  4. IMURAN [Concomitant]
     Active Substance: AZATHIOPRINE
     Indication: COLITIS ULCERATIVE
     Dosage: 75 MG, 1X/DAY
     Route: 048
  5. MEZAVANT [Concomitant]
     Active Substance: MESALAMINE
     Indication: COLITIS ULCERATIVE
     Dosage: 4 DF, OD (1X/DAY)
     Route: 048
  6. INFLECTRA [Suspect]
     Active Substance: INFLIXIMAB-DYYB
     Dosage: 400 MG, EVERY 5 WEEKS
     Route: 042
     Dates: start: 20201022

REACTIONS (8)
  - Intentional product use issue [Unknown]
  - Abdominal pain [Unknown]
  - Off label use [Unknown]
  - Syncope [Not Recovered/Not Resolved]
  - Fall [Unknown]
  - Eye injury [Unknown]
  - Weight decreased [Unknown]
  - Face injury [Unknown]

NARRATIVE: CASE EVENT DATE: 20200116
